FAERS Safety Report 11164263 (Version 2)
Quarter: 2015Q2

REPORT INFORMATION
  Report Type: Spontaneous
  Country: AU (occurrence: None)
  Receive Date: 20150602
  Receipt Date: 20150619
  Transmission Date: 20150821
  Serious: Yes (Life-Threatening)
  Sender: FDA-Public Use
  Company Number: FK201502485

PATIENT
  Age: 25 Year
  Sex: Female
  Weight: 61 kg

DRUGS (1)
  1. SODIUM CHLORIDE. [Suspect]
     Active Substance: SODIUM CHLORIDE
     Indication: PRODUCT USED FOR UNKNOWN INDICATION
     Dosage: INTRAVENOUS (NOT OTHERWISE SPECIFIED)
     Route: 042

REACTIONS (9)
  - Metabolic acidosis [None]
  - Acidosis hyperchloraemic [None]
  - Foetal death [None]
  - Post procedural complication [None]
  - Generalised oedema [None]
  - Respiratory acidosis [None]
  - Abortion induced [None]
  - Pulmonary oedema [None]
  - Maternal exposure during pregnancy [None]
